FAERS Safety Report 14623268 (Version 2)
Quarter: 2018Q2

REPORT INFORMATION
  Report Type: Spontaneous
  Country: US (occurrence: US)
  Receive Date: 20180312
  Receipt Date: 20180424
  Transmission Date: 20180711
  Serious: Yes (Hospitalization, Other)
  Sender: FDA-Public Use
  Company Number: US-BIOGEN-2011BI037638

PATIENT
  Age: 45 Year
  Sex: Female

DRUGS (5)
  1. AVONEX [Suspect]
     Active Substance: INTERFERON BETA-1A
     Route: 030
     Dates: start: 20000201
  2. AVONEX [Suspect]
     Active Substance: INTERFERON BETA-1A
     Route: 030
     Dates: start: 20110816, end: 20110831
  3. AVONEX [Suspect]
     Active Substance: INTERFERON BETA-1A
     Indication: MULTIPLE SCLEROSIS
     Route: 030
     Dates: start: 20040831, end: 20071003
  4. AVONEX [Suspect]
     Active Substance: INTERFERON BETA-1A
     Route: 030
     Dates: start: 2000, end: 2002
  5. AVONEX [Suspect]
     Active Substance: INTERFERON BETA-1A
     Route: 030
     Dates: start: 2011, end: 2011

REACTIONS (15)
  - Respiratory arrest [Recovered/Resolved]
  - Liver injury [Recovered/Resolved]
  - Renal failure [Recovered/Resolved]
  - Amnesia [Not Recovered/Not Resolved]
  - Cognitive disorder [Not Recovered/Not Resolved]
  - Generalised tonic-clonic seizure [Recovered/Resolved with Sequelae]
  - Brain injury [Recovered/Resolved]
  - Pneumonia [Recovered/Resolved]
  - Status epilepticus [Not Recovered/Not Resolved]
  - Hepatic failure [Recovered/Resolved]
  - Hepatitis [Recovered/Resolved]
  - Seizure [Recovered/Resolved]
  - Cerebral atrophy [Not Recovered/Not Resolved]
  - Myocardial infarction [Recovered/Resolved]
  - Coma [Recovered/Resolved]

NARRATIVE: CASE EVENT DATE: 2000
